FAERS Safety Report 7898039-7 (Version None)
Quarter: 2011Q4

REPORT INFORMATION
  Report Type: 
  Country: None (occurrence: None)
  Receive Date: 20111107
  Receipt Date: 20111107
  Transmission Date: 20120403
  Serious: Yes (Other)
  Sender: FDA-Public Use
  Company Number: None

PATIENT
  Age: 79 Year
  Sex: Male
  Weight: 70.306 kg

DRUGS (1)
  1. TOVIAZ [Suspect]
     Indication: STRESS URINARY INCONTINENCE
     Dosage: 1 CAPSULE
     Route: 048
     Dates: start: 20111031, end: 20111103

REACTIONS (3)
  - AGITATION [None]
  - CHEST DISCOMFORT [None]
  - NAUSEA [None]
